FAERS Safety Report 6970361-8 (Version None)
Quarter: 2010Q3

REPORT INFORMATION
  Report Type: 
  Country: None (occurrence: None)
  Receive Date: 20100908
  Receipt Date: 20091203
  Transmission Date: 20110219
  Serious: Yes (Hospitalization)
  Sender: FDA-Public Use
  Company Number: FI-BAXTER-2009BH018551

PATIENT
  Age: 41 Year
  Sex: Male
  Weight: 76 kg

DRUGS (4)
  1. FEIBA [Suspect]
     Indication: HAEMORRHAGE
     Route: 065
     Dates: start: 20091109
  2. ACETAMINOPHEN [Concomitant]
     Indication: PAIN
  3. OPIAT [Concomitant]
     Indication: PAIN
     Route: 030
  4. FIBRIN SEALANT NOS [Concomitant]
     Indication: HAEMORRHAGE

REACTIONS (1)
  - RECTAL HAEMORRHAGE [None]
